FAERS Safety Report 24996432 (Version 1)
Quarter: 2025Q1

REPORT INFORMATION
  Report Type: Spontaneous
  Country: PL (occurrence: PL)
  Receive Date: 20250221
  Receipt Date: 20250221
  Transmission Date: 20250409
  Serious: Yes (Other)
  Sender: BAXTER
  Company Number: None

PATIENT
  Age: 43 Year
  Sex: Female
  Weight: 64 kg

DRUGS (1)
  1. DOXORUBICIN [Suspect]
     Active Substance: DOXORUBICIN
     Route: 042
     Dates: start: 20210311, end: 20210311

REACTIONS (3)
  - Neutropenia [Recovered/Resolved with Sequelae]
  - Anaemia [Recovered/Resolved with Sequelae]
  - Leukopenia [Recovered/Resolved with Sequelae]

NARRATIVE: CASE EVENT DATE: 20210318
